FAERS Safety Report 16117708 (Version 2)
Quarter: 2019Q2

REPORT INFORMATION
  Report Type: Report from Study
  Country: ZA (occurrence: ZA)
  Receive Date: 20190326
  Receipt Date: 20190415
  Transmission Date: 20190711
  Serious: Yes (Other)
  Sender: FDA-Public Use
  Company Number: ZA-ROCHE-2284799

PATIENT
  Age: 74 Year
  Sex: Male
  Weight: 76.9 kg

DRUGS (2)
  1. COBIMETINIB. [Suspect]
     Active Substance: COBIMETINIB
     Indication: PRODUCT USED FOR UNKNOWN INDICATION
     Route: 048
     Dates: start: 20180601
  2. VEMURAFENIB. [Suspect]
     Active Substance: VEMURAFENIB
     Indication: PRODUCT USED FOR UNKNOWN INDICATION
     Dosage: FOR 28 DAYS
     Route: 065
     Dates: start: 20180504

REACTIONS (9)
  - Lip swelling [Recovered/Resolved]
  - Peripheral swelling [Recovered/Resolved]
  - Lip ulceration [Not Recovered/Not Resolved]
  - Pruritus [Recovered/Resolved]
  - Rash pustular [Unknown]
  - Mucosal inflammation [Not Recovered/Not Resolved]
  - Lip swelling [Unknown]
  - Rash pustular [Recovered/Resolved]
  - Rash [Unknown]

NARRATIVE: CASE EVENT DATE: 20180601
